FAERS Safety Report 8560090-1 (Version None)
Quarter: 2012Q3

REPORT INFORMATION
  Report Type: 
  Country: None (occurrence: None)
  Receive Date: 20120802
  Receipt Date: 20120726
  Transmission Date: 20120928
  Serious: No
  Sender: FDA-Public Use
  Company Number: US-B.I. PHARMACEUTICALS,INC./RIDGEFIELD-2012-BP-17038BP

PATIENT
  Age: 81 Year
  Sex: Female

DRUGS (6)
  1. BENAZEPRIL HYDROCHLORIDE [Concomitant]
     Indication: HYPERTENSION
  2. POTASSIUM [Concomitant]
     Indication: SUPPLEMENTATION THERAPY
  3. AMIODARONE HCL [Concomitant]
     Indication: ATRIAL FIBRILLATION
  4. CALCIUM [Concomitant]
     Indication: SUPPLEMENTATION THERAPY
  5. LASIX [Concomitant]
     Indication: OEDEMA
  6. PRADAXA [Suspect]
     Indication: ATRIAL FIBRILLATION
     Dosage: 150 MG
     Route: 048
     Dates: start: 20120601

REACTIONS (2)
  - LIMB INJURY [None]
  - HAEMORRHAGE [None]
